FAERS Safety Report 6737418-8 (Version None)
Quarter: 2010Q2

REPORT INFORMATION
  Report Type: 
  Country: None (occurrence: None)
  Receive Date: 20100524
  Receipt Date: 20100511
  Transmission Date: 20101027
  Serious: Yes (Hospitalization, Other)
  Sender: FDA-Public Use
  Company Number: US-BAYER-200943931NA

PATIENT
  Age: 22 Year
  Sex: Female
  Weight: 71 kg

DRUGS (1)
  1. MIRENA [Suspect]
     Indication: CONTRACEPTION
     Dosage: CONTINUOUS
     Route: 015
     Dates: start: 20080910, end: 20081126

REACTIONS (8)
  - ABDOMINAL DISTENSION [None]
  - ABDOMINAL PAIN [None]
  - ENDOMETRITIS [None]
  - OVARIAN CYST [None]
  - POST PROCEDURAL HAEMORRHAGE [None]
  - UTERINE INJURY [None]
  - VAGINAL SWELLING [None]
  - VULVOVAGINAL PAIN [None]
